FAERS Safety Report 10202062 (Version 2)
Quarter: 2014Q2

REPORT INFORMATION
  Report Type: Spontaneous
  Country: US (occurrence: US)
  Receive Date: 20140528
  Receipt Date: 20140620
  Transmission Date: 20141212
  Serious: Yes (Death)
  Sender: FDA-Public Use
  Company Number: US-GLAXOSMITHKLINE-A1074211A

PATIENT
  Age: 57 Year
  Sex: Male

DRUGS (10)
  1. PROMACTA [Suspect]
     Indication: PLASMA CELL MYELOMA
     Dosage: 50MG PER DAY
     Route: 048
     Dates: start: 20130605
  2. LYRICA [Concomitant]
  3. HYDROCODONE [Concomitant]
  4. LORAZEPAM [Concomitant]
  5. PROCHLORPERAZINE [Concomitant]
  6. NEXIUM [Concomitant]
  7. TRICOR [Concomitant]
  8. SODIUM BICARBONATE [Concomitant]
  9. ARANESP [Concomitant]
  10. LEVOTHYROXINE [Concomitant]

REACTIONS (2)
  - Death [Fatal]
  - Sepsis [Unknown]
